FAERS Safety Report 8819701 (Version 1)
Quarter: 2012Q4

REPORT INFORMATION
  Report Type: 
  Country: US (occurrence: US)
  Receive Date: 20121001
  Receipt Date: 20121001
  Transmission Date: 20130627
  Serious: Yes (Other)
  Sender: FDA-Public Use
  Company Number: US-JNJFOC-20120910722

PATIENT
  Sex: Female

DRUGS (1)
  1. BENADRYL ALLERGY QUICK DISSOLVE [Suspect]
     Indication: ARTHROPOD STING
     Route: 061

REACTIONS (6)
  - Pharyngeal oedema [Recovered/Resolved]
  - Throat tightness [Recovered/Resolved]
  - Swollen tongue [Recovered/Resolved]
  - Incorrect route of drug administration [Unknown]
  - Off label use [Unknown]
  - Somnolence [Unknown]
